FAERS Safety Report 14433329 (Version 1)
Quarter: 2018Q1

REPORT INFORMATION
  Report Type: Spontaneous
  Country: US (occurrence: US)
  Receive Date: 20180124
  Receipt Date: 20180124
  Transmission Date: 20180509
  Serious: No
  Sender: FDA-Public Use
  Company Number: US-PCCINC-2017-PEL-003215

PATIENT

DRUGS (10)
  1. IMIPRAMINE [Concomitant]
     Active Substance: IMIPRAMINE
     Dosage: 25 MG, TID
     Route: 065
  2. GABLOFEN [Suspect]
     Active Substance: BACLOFEN
     Indication: MUSCLE SPASTICITY
  3. MIDODRINE [Concomitant]
     Active Substance: MIDODRINE
     Dosage: 5 MG, BID
     Route: 065
  4. PROBIOTIC                          /06395501/ [Concomitant]
     Active Substance: BIFIDOBACTERIUM ANIMALIS LACTIS
     Dosage: UNK, QD
     Route: 065
  5. OXYBUTYNIN. [Concomitant]
     Active Substance: OXYBUTYNIN CHLORIDE
     Dosage: 10 MG, TID ER
     Route: 065
  6. COLACE [Concomitant]
     Active Substance: DOCUSATE SODIUM
     Dosage: 100 MG, BID
     Route: 065
  7. GABLOFEN [Suspect]
     Active Substance: BACLOFEN
     Indication: PARAPLEGIA
  8. VITAMIN D                          /00107901/ [Concomitant]
     Active Substance: ERGOCALCIFEROL
     Dosage: UNK, QD
     Route: 065
  9. GABLOFEN [Suspect]
     Active Substance: BACLOFEN
     Indication: SPINAL CORD INJURY
     Dosage: 128.08 ?G, QD
     Route: 037
     Dates: start: 20170711
  10. SENNA                              /00142201/ [Concomitant]
     Active Substance: SENNA LEAF
     Dosage: 8.6 MG, 3 TABLETS TID, EVERY OTHER DAY (QOD)
     Route: 065

REACTIONS (7)
  - Incision site cellulitis [Unknown]
  - Headache [Unknown]
  - Implant site swelling [Recovered/Resolved]
  - Urinary retention [Unknown]
  - Implant site infection [Recovered/Resolved]
  - Urinary incontinence [Unknown]
  - Scar [Unknown]

NARRATIVE: CASE EVENT DATE: 20170711
